FAERS Safety Report 4609202-2 (Version None)
Quarter: 2005Q1

REPORT INFORMATION
  Report Type: 
  Country: None (occurrence: None)
  Receive Date: 20050315
  Receipt Date: 20050309
  Transmission Date: 20050727
  Serious: Yes (Life-Threatening, Hospitalization)
  Sender: FDA-Public Use
  Company Number: GB-MERCK-0503GBR00097

PATIENT
  Age: 86 Year
  Sex: Female

DRUGS (6)
  1. VIOXX [Suspect]
     Indication: ARTHRALGIA
     Route: 048
     Dates: start: 20031028, end: 20041002
  2. CELECOXIB [Suspect]
     Indication: ARTHRALGIA
     Route: 048
     Dates: start: 20041008
  3. BUMETANIDE [Concomitant]
     Indication: OEDEMA
     Route: 048
     Dates: start: 19970221
  4. POTASSIUM (UNSPECIFIED) [Concomitant]
     Indication: OEDEMA
     Route: 048
     Dates: start: 19970721
  5. DIGOXIN [Concomitant]
     Indication: MYOCARDIAL ISCHAEMIA
     Route: 048
     Dates: start: 19960305
  6. VERAPAMIL [Concomitant]
     Indication: MYOCARDIAL ISCHAEMIA
     Route: 048

REACTIONS (1)
  - MYOCARDIAL INFARCTION [None]
